FAERS Safety Report 10061529 (Version 2)
Quarter: 2014Q2

REPORT INFORMATION
  Report Type: Spontaneous
  Country: US (occurrence: US)
  Receive Date: 20140407
  Receipt Date: 20140407
  Transmission Date: 20141212
  Serious: No
  Sender: FDA-Public Use
  Company Number: US-US-EMD SERONO, INC.-230836J10USA

PATIENT
  Sex: Female

DRUGS (8)
  1. REBIF [Suspect]
     Indication: MULTIPLE SCLEROSIS
     Route: 058
     Dates: start: 20061020, end: 2007
  2. AMINOPYRIDINE [Concomitant]
     Indication: MULTIPLE SCLEROSIS
     Route: 048
  3. OXYBUTYNIN [Concomitant]
     Indication: MULTIPLE SCLEROSIS
     Route: 065
  4. AMANTADINE [Concomitant]
     Indication: MULTIPLE SCLEROSIS
  5. CHONDROITIN [Concomitant]
     Indication: PRODUCT USED FOR UNKNOWN INDICATION
  6. BABY ASPIRIN [Concomitant]
     Indication: PRODUCT USED FOR UNKNOWN INDICATION
  7. VITAMIN D3 [Concomitant]
     Indication: PRODUCT USED FOR UNKNOWN INDICATION
  8. FLAXSEED OIL [Concomitant]
     Indication: PRODUCT USED FOR UNKNOWN INDICATION

REACTIONS (5)
  - Infection [Recovered/Resolved]
  - Feeling abnormal [Unknown]
  - Multiple sclerosis [Unknown]
  - Depressed mood [Unknown]
  - Depression [Recovered/Resolved]
